FAERS Safety Report 7488995-3 (Version None)
Quarter: 2011Q2

REPORT INFORMATION
  Report Type: 
  Country: None (occurrence: None)
  Receive Date: 20110518
  Receipt Date: 20110502
  Transmission Date: 20111010
  Serious: No
  Sender: FDA-Public Use
  Company Number: US-B.I. PHARMACEUTICALS,INC./RIDGEFIELD-2011-BP-12253BP

PATIENT
  Sex: Female

DRUGS (2)
  1. FLOMAX [Suspect]
     Indication: DYSURIA
  2. ZOLOFT [Concomitant]

REACTIONS (3)
  - ABDOMINAL DISCOMFORT [None]
  - FREQUENT BOWEL MOVEMENTS [None]
  - DIARRHOEA [None]
